FAERS Safety Report 4668889-9 (Version None)
Quarter: 2005Q2

REPORT INFORMATION
  Report Type: 
  Country: None (occurrence: None)
  Receive Date: 20050523
  Receipt Date: 20050512
  Transmission Date: 20051028
  Serious: Yes (Hospitalization)
  Sender: FDA-Public Use
  Company Number: US-MERCK-0505USA01711

PATIENT
  Age: 52 Year
  Sex: Male
  Weight: 68 kg

DRUGS (2)
  1. VIOXX [Suspect]
     Indication: SHOULDER PAIN
     Route: 048
     Dates: start: 19990101, end: 20040901
  2. VIOXX [Suspect]
     Indication: BURSITIS
     Route: 048
     Dates: start: 19990101, end: 20040901

REACTIONS (13)
  - ACUTE MYOCARDIAL INFARCTION [None]
  - ANGINA PECTORIS [None]
  - BACK PAIN [None]
  - BLOOD TRIGLYCERIDES INCREASED [None]
  - CHRONIC OBSTRUCTIVE PULMONARY DISEASE [None]
  - CORONARY ARTERY ATHEROSCLEROSIS [None]
  - EMOTIONAL DISTRESS [None]
  - HYPERLIPIDAEMIA [None]
  - HYPERTENSION [None]
  - INTERVERTEBRAL DISC PROTRUSION [None]
  - PERIPHERAL VASCULAR DISORDER [None]
  - ROTATOR CUFF SYNDROME [None]
  - SLEEP APNOEA SYNDROME [None]
